APPROVED DRUG PRODUCT: HYDROMORPHONE HYDROCHLORIDE
Active Ingredient: HYDROMORPHONE HYDROCHLORIDE
Strength: 2MG
Dosage Form/Route: TABLET;ORAL
Application: A205814 | Product #001 | TE Code: AB
Applicant: AUROLIFE PHARMA LLC
Approved: May 13, 2016 | RLD: No | RS: No | Type: RX